FAERS Safety Report 12201172 (Version 1)
Quarter: 2016Q1

REPORT INFORMATION
  Report Type: Spontaneous
  Country: US (occurrence: US)
  Receive Date: 20160322
  Receipt Date: 20160322
  Transmission Date: 20160526
  Serious: No
  Sender: FDA-Public Use
  Company Number: US-SA-2015SA057617

PATIENT
  Age: 55 Year
  Sex: Male

DRUGS (2)
  1. NASACORT ALLERGY 24HR [Suspect]
     Active Substance: TRIAMCINOLONE ACETONIDE
     Indication: NASAL CONGESTION
     Dosage: DOSAGE: 1-2 SPRAYS EACH NOSTRIL?PRODUCT STOP DATE: 3-4 DAYS LATER
     Route: 045
     Dates: start: 20150420
  2. NASACORT ALLERGY 24HR [Suspect]
     Active Substance: TRIAMCINOLONE ACETONIDE
     Indication: MULTIPLE ALLERGIES
     Dosage: DOSAGE: 1-2 SPRAYS EACH NOSTRIL?PRODUCT STOP DATE: 3-4 DAYS LATER
     Route: 045
     Dates: start: 20150420

REACTIONS (3)
  - Drug ineffective [Unknown]
  - Incorrect dose administered [Unknown]
  - Condition aggravated [Not Recovered/Not Resolved]
